FAERS Safety Report 9378332 (Version 1)
Quarter: 2013Q3

REPORT INFORMATION
  Report Type: Spontaneous
  Country: CA (occurrence: CA)
  Receive Date: 20130701
  Receipt Date: 20130701
  Transmission Date: 20140515
  Serious: Yes (Other)
  Sender: FDA-Public Use
  Company Number: CA-TEVA-416088USA

PATIENT
  Age: 84 Year
  Sex: Female

DRUGS (9)
  1. DOXYCYCLINE [Suspect]
     Dosage: 200 MILLIGRAM DAILY;
     Route: 048
  2. ASPIRIN [Concomitant]
  3. CALCIUM [Concomitant]
  4. COVERSYL [Concomitant]
  5. SIMVASTATIN [Concomitant]
  6. SYNTHROID [Concomitant]
  7. VITAMINS [Concomitant]
  8. NOVO-DOXYLIN [Concomitant]
  9. RATIO-AMLODIPINE [Concomitant]

REACTIONS (4)
  - Haemorrhage urinary tract [Unknown]
  - Asthenia [Unknown]
  - Dizziness [Unknown]
  - Feeling abnormal [Unknown]
